FAERS Safety Report 7050226-6 (Version None)
Quarter: 2010Q4

REPORT INFORMATION
  Report Type: 
  Country: None (occurrence: None)
  Receive Date: 20101013
  Receipt Date: 20100928
  Transmission Date: 20110411
  Serious: Yes (Hospitalization)
  Sender: FDA-Public Use
  Company Number: IDA-00437

PATIENT
  Age: 62 Year
  Sex: Female

DRUGS (8)
  1. AVLOCARDYL (PROPRANOLOL) STRENGTH: 40MG [Suspect]
     Indication: HYPERTENSION
     Dosage: 20 MG DAILY, ORAL FORMULATION
     Route: 048
  2. BONIVA [Suspect]
     Indication: OSTEOPOROSIS
     Dosage: 150 MG MONTH, ORAL
     Route: 048
     Dates: start: 20071101, end: 20100601
  3. PREDNISONE TAB [Concomitant]
  4. MONOCRIXO (TRAMADOL HYDROCHLORIDE) [Concomitant]
  5. (BROMAZEPAM) [Concomitant]
  6. ZOLPIDEM TARTRATE [Concomitant]
  7. ESCITALOPRAM [Concomitant]
  8. CACIT VITAMINE D3 (CALCIUM CARBONATE, COLECALCIFEROL) [Concomitant]

REACTIONS (8)
  - ARTHRALGIA [None]
  - BLEPHARITIS [None]
  - FACIAL NEURALGIA [None]
  - GLARE [None]
  - HEADACHE [None]
  - PAPILLOEDEMA [None]
  - VISION BLURRED [None]
  - VISUAL ACUITY REDUCED [None]
